FAERS Safety Report 8784352 (Version 2)
Quarter: 2014Q2

REPORT INFORMATION
  Report Type: Spontaneous
  Country: US (occurrence: US)
  Receive Date: 20120913
  Receipt Date: 20140507
  Transmission Date: 20141212
  Serious: Yes (Other)
  Sender: FDA-Public Use
  Company Number: US-ASTRAZENECA-2012SE64651

PATIENT
  Age: 43 Year
  Sex: Male
  Weight: 111.1 kg

DRUGS (4)
  1. SYMBICORT PMDI [Suspect]
     Indication: ASTHMA
     Dosage: 160/4.5, 2 PUFFS, TWO TIMES A DAY
     Route: 055
     Dates: start: 2012
  2. PRILOSEC [Suspect]
     Route: 048
     Dates: start: 2014
  3. MULTIVITAMINS [Concomitant]
  4. GENERIC ZOLOFT [Concomitant]
     Indication: DEPRESSION
     Dates: start: 2010

REACTIONS (7)
  - Accident at work [Unknown]
  - Asthma [Unknown]
  - Asthma [Not Recovered/Not Resolved]
  - Pulmonary function test decreased [Not Recovered/Not Resolved]
  - Off label use [Unknown]
  - Drug dose omission [Not Recovered/Not Resolved]
  - Intentional product misuse [Unknown]
